FAERS Safety Report 21699593 (Version 1)
Quarter: 2022Q4

REPORT INFORMATION
  Report Type: Spontaneous
  Country: CA (occurrence: CA)
  Receive Date: 20221208
  Receipt Date: 20221208
  Transmission Date: 20230113
  Serious: No
  Sender: FDA-Public Use
  Company Number: CA-PFIZER INC-202201348874

PATIENT

DRUGS (1)
  1. PAXLOVID [Suspect]
     Active Substance: NIRMATRELVIR\RITONAVIR
     Dosage: NIRMATRELVIR 300MG FOR FIRST DAY OF T/T AND 150MG DAILY FOR NXT 4DAY,RITONAVIR-100 MG DAILY-5DAYS

REACTIONS (2)
  - Off label use [Unknown]
  - Product use issue [Unknown]
